FAERS Safety Report 23402406 (Version 1)
Quarter: 2024Q1

REPORT INFORMATION
  Report Type: Other
  Country: US (occurrence: US)
  Receive Date: 20240115
  Receipt Date: 20240115
  Transmission Date: 20240409
  Serious: No
  Sender: FDA-Public Use
  Company Number: US-ELITEPHARMA-2023ELT00038

PATIENT
  Age: 27 Year
  Sex: Female
  Weight: 83 kg

DRUGS (4)
  1. DEXTROAMPHET SACCHARAT, AMPHET ASPARTATE, DEXTROAMPHET SULFATE AND AMP [Suspect]
     Active Substance: AMPHETAMINE ASPARTATE\AMPHETAMINE ASPARTATE MONOHYDRATE\AMPHETAMINE SULFATE\DEXTROAMPHETAMINE SACCHA
     Indication: Attention deficit hyperactivity disorder
     Dosage: STARTED AGAIN 20-30 MG (1-1.5 PILLS) ONCE A DAY IN THE MORNING
     Route: 048
     Dates: start: 202303, end: 202303
  2. DEXTROAMPHET SACCHARAT, AMPHET ASPARTATE, DEXTROAMPHET SULFATE AND AMP [Suspect]
     Active Substance: AMPHETAMINE ASPARTATE\AMPHETAMINE ASPARTATE MONOHYDRATE\AMPHETAMINE SULFATE\DEXTROAMPHETAMINE SACCHA
     Dosage: 20-30 MG (1-1.5 PILLS) ONCE A DAY IN THE MORNING
     Route: 048
     Dates: start: 202208, end: 202303
  3. OMEPRAZOLE [Concomitant]
     Active Substance: OMEPRAZOLE
     Dosage: 40 MG
  4. FAMOTIDINE [Concomitant]
     Active Substance: FAMOTIDINE
     Dosage: 20 MG, AS NEEDED

REACTIONS (14)
  - Hypoaesthesia eye [Recovered/Resolved]
  - Blepharospasm [Recovered/Resolved]
  - Hypoaesthesia [Recovered/Resolved]
  - Paraesthesia [Recovered/Resolved]
  - Insomnia [Recovered/Resolved]
  - Attention deficit hyperactivity disorder [Recovered/Resolved]
  - Drug ineffective [Recovered/Resolved]
  - Pharyngitis streptococcal [Recovered/Resolved]
  - Tachycardia [Recovered/Resolved]
  - Palpitations [Recovered/Resolved]
  - Product substitution issue [Recovered/Resolved]
  - Product odour abnormal [Recovered/Resolved]
  - Product colour issue [Recovered/Resolved]
  - Product shape issue [Recovered/Resolved]

NARRATIVE: CASE EVENT DATE: 20220101
